FAERS Safety Report 12235231 (Version 3)
Quarter: 2017Q1

REPORT INFORMATION
  Report Type: Spontaneous
  Country: US (occurrence: US)
  Receive Date: 20160404
  Receipt Date: 20170113
  Transmission Date: 20170428
  Serious: Yes (Other)
  Sender: FDA-Public Use
  Company Number: US-PFIZER INC-2016169252

PATIENT
  Sex: Female

DRUGS (1)
  1. NEURONTIN [Suspect]
     Active Substance: GABAPENTIN
     Dosage: UNK

REACTIONS (7)
  - Seizure [Unknown]
  - Joint injury [Unknown]
  - Cardiac disorder [Unknown]
  - Fall [Unknown]
  - Malaise [Unknown]
  - Alopecia [Unknown]
  - Pain [Unknown]
